FAERS Safety Report 5746044-9 (Version None)
Quarter: 2008Q2

REPORT INFORMATION
  Report Type: 
  Country: None (occurrence: None)
  Receive Date: 20080522
  Receipt Date: 20080512
  Transmission Date: 20081010
  Serious: Yes (Other)
  Sender: FDA-Public Use
  Company Number: US-JNJFOC-20080502627

PATIENT
  Sex: Female
  Weight: 138.8 kg

DRUGS (12)
  1. REMICADE [Suspect]
     Route: 042
  2. REMICADE [Suspect]
     Indication: PSORIATIC ARTHROPATHY
     Route: 042
  3. BPAP [Concomitant]
     Indication: SLEEP APNOEA SYNDROME
  4. POTASSIUM CHLORIDE [Concomitant]
     Indication: NUTRITIONAL SUPPORT
  5. VITAMIN D [Concomitant]
     Indication: NUTRITIONAL SUPPORT
  6. TYLENOL [Concomitant]
     Indication: PAIN
  7. FOLIC ACID [Concomitant]
  8. AMBIEN [Concomitant]
     Indication: SLEEP DISORDER
  9. FLONASE [Concomitant]
     Indication: HYPERSENSITIVITY
  10. ULTRAM [Concomitant]
     Indication: PAIN
  11. METHOTREXATE [Concomitant]
  12. COZAAR [Concomitant]
     Indication: HYPERTENSION

REACTIONS (1)
  - PULMONARY HYPERTENSION [None]
